FAERS Safety Report 7612219-7 (Version None)
Quarter: 2011Q3

REPORT INFORMATION
  Report Type: 
  Country: None (occurrence: None)
  Receive Date: 20110715
  Receipt Date: 20110706
  Transmission Date: 20111222
  Serious: Yes (Hospitalization, Other)
  Sender: FDA-Public Use
  Company Number: JP-B.I. PHARMACEUTICALS,INC./RIDGEFIELD-2011-DE-03741GD

PATIENT
  Sex: Male
  Weight: 60 kg

DRUGS (5)
  1. PRAMIPEXOLE DIHYDROCHLORIDE [Suspect]
     Indication: PARKINSON'S DISEASE
     Dosage: 3 MG
     Route: 048
     Dates: end: 20110123
  2. PRAMIPEXOLE DIHYDROCHLORIDE [Suspect]
     Dosage: 1.5 MG
     Route: 048
     Dates: start: 20110124, end: 20110126
  3. TRIHEXYPHENIDYL HCL [Suspect]
     Indication: PARKINSON'S DISEASE
     Dosage: 6 MG
     Route: 048
     Dates: end: 20110114
  4. SELEGILINE HCL [Suspect]
     Indication: PARKINSON'S DISEASE
     Dosage: 5 MG
     Route: 048
     Dates: end: 20110117
  5. DONEPEZIL HYDROCHLORIDE [Suspect]
     Indication: PARKINSON'S DISEASE
     Dosage: 2.5 MG
     Route: 048
     Dates: end: 20110120

REACTIONS (6)
  - SUICIDAL IDEATION [None]
  - HALLUCINATION [None]
  - LISTLESS [None]
  - DELUSION [None]
  - AGITATION [None]
  - COGNITIVE DISORDER [None]
